FAERS Safety Report 19939277 (Version 1)
Quarter: 2021Q4

REPORT INFORMATION
  Report Type: Spontaneous
  Country: JP (occurrence: JP)
  Receive Date: 20211011
  Receipt Date: 20211011
  Transmission Date: 20220303
  Serious: Yes (Hospitalization, Other)
  Sender: FDA-Public Use
  Company Number: JP-MICRO LABS LIMITED-ML2021-02336

PATIENT
  Age: 79 Year
  Sex: Female

DRUGS (4)
  1. GLIMEPIRIDE [Suspect]
     Active Substance: GLIMEPIRIDE
     Indication: Type 2 diabetes mellitus
  2. INSULIN GLARGINE [Suspect]
     Active Substance: INSULIN GLARGINE
  3. SITAGLIPTIN [Suspect]
     Active Substance: SITAGLIPTIN
  4. MIGLITOL [Suspect]
     Active Substance: MIGLITOL

REACTIONS (1)
  - Hypoglycaemic encephalopathy [Recovering/Resolving]
